FAERS Safety Report 6234664-7 (Version None)
Quarter: 2009Q2

REPORT INFORMATION
  Report Type: 
  Country: None (occurrence: None)
  Receive Date: 20090616
  Receipt Date: 20090616
  Transmission Date: 20091009
  Serious: Yes (Other)
  Sender: FDA-Public Use
  Company Number: None

PATIENT
  Age: 51 Year
  Sex: Male
  Weight: 145.151 kg

DRUGS (1)
  1. LANTUS [Suspect]
     Indication: DIABETES MELLITUS
     Dosage: 20 UNITS BEDTIME IM
     Route: 030
     Dates: start: 20090601, end: 20090615

REACTIONS (7)
  - ACTIVITIES OF DAILY LIVING IMPAIRED [None]
  - ANXIETY [None]
  - CONDITION AGGRAVATED [None]
  - FEAR [None]
  - INSOMNIA [None]
  - MENTAL IMPAIRMENT [None]
  - MOVEMENT DISORDER [None]
